FAERS Safety Report 23573440 (Version 1)
Quarter: 2024Q1

REPORT INFORMATION
  Report Type: Spontaneous
  Country: CN (occurrence: None)
  Receive Date: 20240228
  Receipt Date: 20240228
  Transmission Date: 20240410
  Serious: Yes (Other)
  Sender: FDA-Public Use
  Company Number: CN-ROCHE-3513571

PATIENT
  Age: 52 Year
  Sex: Female

DRUGS (5)
  1. POLIVY [Suspect]
     Active Substance: POLATUZUMAB VEDOTIN-PIIQ
     Indication: Diffuse large B-cell lymphoma
     Dosage: SECOND CYCLE; AN UNSPECIFIED DATE, THIRD AND FOURTH CYCLE.
     Route: 065
     Dates: start: 20230803
  2. MABTHERA [Suspect]
     Active Substance: RITUXIMAB
     Indication: Diffuse large B-cell lymphoma
     Dosage: SECOND CYCLE; AN UNSPECIFIED DATE, THIRD AND FOURTH CYCLE.
     Route: 065
     Dates: start: 20230803
  3. CYCLOPHOSPHAMIDE [Concomitant]
     Active Substance: CYCLOPHOSPHAMIDE
     Indication: Diffuse large B-cell lymphoma
     Dosage: 03 AUG 2023 FIRST CYCLE; 30 AUG 2023 SECOND CYCLE; AN UNSPECIFIED DATE, THIRD AND FOURTH CYCLE.
     Dates: start: 20230803
  4. DOXORUBICIN [Concomitant]
     Active Substance: DOXORUBICIN
     Indication: Diffuse large B-cell lymphoma
     Dosage: 03 AUG 2023 FIRST CYCLE; 30 AUG 2023 SECOND CYCLE; AN UNSPECIFIED DATE, THIRD AND FOURTH CYCLE.
     Dates: start: 20230803
  5. PREDNISONE [Concomitant]
     Active Substance: PREDNISONE
     Indication: Diffuse large B-cell lymphoma
     Dosage: 03 AUG 2023 FIRST CYCLE; 30 AUG 2023 SECOND CYCLE; AN UNSPECIFIED DATE, THIRD AND FOURTH CYCLE.
     Dates: start: 20230803

REACTIONS (1)
  - Myelosuppression [Unknown]
